FAERS Safety Report 6643554-7 (Version None)
Quarter: 2010Q1

REPORT INFORMATION
  Report Type: 
  Country: None (occurrence: None)
  Receive Date: 20100320
  Receipt Date: 20100303
  Transmission Date: 20100710
  Serious: No
  Sender: FDA-Public Use
  Company Number: US-ROXANE LABORATORIES, INC.-2010-RO-00295RO

PATIENT
  Age: 56 Year
  Sex: Female

DRUGS (6)
  1. LITHIUM CARBONATE [Suspect]
     Indication: AFFECTIVE DISORDER
     Dosage: 1050 MG
     Dates: start: 19900101
  2. BLOOD PRESSURE MEDICATION [Concomitant]
  3. VALTREX [Concomitant]
  4. SYNTHROID [Concomitant]
     Indication: AUTOIMMUNE THYROIDITIS
  5. EMSAM [Concomitant]
     Route: 062
  6. LYRICA [Concomitant]

REACTIONS (5)
  - ABDOMINAL DISTENSION [None]
  - GASTRITIS [None]
  - NAUSEA [None]
  - RASH [None]
  - WEIGHT INCREASED [None]
